FAERS Safety Report 25754716 (Version 1)
Quarter: 2025Q3

REPORT INFORMATION
  Report Type: Spontaneous
  Country: US (occurrence: US)
  Receive Date: 20250903
  Receipt Date: 20250903
  Transmission Date: 20251020
  Serious: Yes (Hospitalization, Other)
  Sender: LEXICON PHARMACEUTICALS
  Company Number: US-LEX-000803

PATIENT
  Age: 81 Year
  Sex: Female

DRUGS (7)
  1. INPEFA [Suspect]
     Active Substance: SOTAGLIFLOZIN
     Indication: Chronic left ventricular failure
     Route: 048
     Dates: start: 20240831
  2. CEPHALEXIN [Concomitant]
     Active Substance: CEPHALEXIN
  3. PREDNISONE [Concomitant]
     Active Substance: PREDNISONE
  4. METOPROLOL TARTRATE [Concomitant]
     Active Substance: METOPROLOL TARTRATE
  5. DILTIA XT [Concomitant]
     Active Substance: DILTIAZEM HYDROCHLORIDE
  6. LASIX [Concomitant]
     Active Substance: FUROSEMIDE
  7. GABAPENTIN [Concomitant]
     Active Substance: GABAPENTIN

REACTIONS (2)
  - Surgery [Unknown]
  - Respiration abnormal [Unknown]
